FAERS Safety Report 23251762 (Version 1)
Quarter: 2023Q4

REPORT INFORMATION
  Report Type: Spontaneous
  Country: IN (occurrence: IN)
  Receive Date: 20231201
  Receipt Date: 20231201
  Transmission Date: 20240110
  Serious: Yes (Other)
  Sender: FDA-Public Use
  Company Number: IN-009507513-2311IND010316

PATIENT
  Age: 12 Year
  Sex: Male
  Weight: 70.2 kg

DRUGS (3)
  1. TEMOZOLOMIDE [Suspect]
     Active Substance: TEMOZOLOMIDE
     Indication: Ewing^s sarcoma recurrent
     Dosage: UNK
     Route: 048
     Dates: start: 20230616
  2. PALBOCICLIB [Suspect]
     Active Substance: PALBOCICLIB
     Indication: Ewing^s sarcoma recurrent
     Dosage: UNK
     Dates: start: 20230616
  3. IRINOTECAN [Suspect]
     Active Substance: IRINOTECAN
     Indication: Ewing^s sarcoma recurrent
     Dosage: UNK
     Dates: start: 20230616

REACTIONS (7)
  - Malignant neoplasm progression [Unknown]
  - Spinal cord compression [Unknown]
  - Bone pain [Unknown]
  - Pyrexia [Unknown]
  - Headache [Unknown]
  - Decreased appetite [Unknown]
  - Product use in unapproved indication [Unknown]

NARRATIVE: CASE EVENT DATE: 20230101
